FAERS Safety Report 21129007 (Version 1)
Quarter: 2022Q3

REPORT INFORMATION
  Report Type: Spontaneous
  Country: NL (occurrence: NL)
  Receive Date: 20220725
  Receipt Date: 20220725
  Transmission Date: 20221027
  Serious: Yes (Other)
  Sender: FDA-Public Use
  Company Number: NL-Gedeon Richter Plc.-2022_GR_005720

PATIENT
  Sex: Female

DRUGS (6)
  1. CARIPRAZINE HYDROCHLORIDE [Suspect]
     Active Substance: CARIPRAZINE HYDROCHLORIDE
     Indication: Psychotic disorder
     Dosage: 4.5 MG, QD
  2. CARIPRAZINE HYDROCHLORIDE [Suspect]
     Active Substance: CARIPRAZINE HYDROCHLORIDE
     Indication: Depression
     Dosage: 3 MG, QD
  3. CARIPRAZINE HYDROCHLORIDE [Suspect]
     Active Substance: CARIPRAZINE HYDROCHLORIDE
     Indication: Delusion
     Dosage: 1.5 MG, QD
  4. CITALOPRAM [Concomitant]
     Active Substance: CITALOPRAM HYDROBROMIDE
     Dosage: 20 MG, QD IF NECESSARY
  5. OXAZEPAM [Concomitant]
     Active Substance: OXAZEPAM
  6. LORAZEPAM [Concomitant]
     Active Substance: LORAZEPAM
     Dosage: 2.5 MG

REACTIONS (4)
  - Off label use [Unknown]
  - Suicidal ideation [Unknown]
  - Akathisia [Unknown]
  - Restlessness [Unknown]
